FAERS Safety Report 4811705-2 (Version None)
Quarter: 2005Q4

REPORT INFORMATION
  Report Type: 
  Country: None (occurrence: None)
  Receive Date: 20051025
  Receipt Date: 20051013
  Transmission Date: 20060501
  Serious: Yes (Other)
  Sender: FDA-Public Use
  Company Number: 2005130433

PATIENT
  Age: 76 Year
  Sex: Male

DRUGS (1)
  1. UNASYN [Suspect]
     Indication: INFECTION PROPHYLAXIS
     Dosage: 3 GRAM (1.5 GRAM, BID), INTRAVENOUS
     Route: 042

REACTIONS (1)
  - HEPATITIS FULMINANT [None]
